FAERS Safety Report 6639600-7 (Version None)
Quarter: 2010Q1

REPORT INFORMATION
  Report Type: 
  Country: None (occurrence: None)
  Receive Date: 20100318
  Receipt Date: 20100315
  Transmission Date: 20100710
  Serious: Yes (Death)
  Sender: FDA-Public Use
  Company Number: US-CELGENEUS-163-21880-10031445

PATIENT
  Sex: Female

DRUGS (1)
  1. REVLIMID [Suspect]
     Indication: MULTIPLE MYELOMA
     Route: 048
     Dates: start: 20070101

REACTIONS (5)
  - DEATH [None]
  - PAIN [None]
  - PNEUMONIA [None]
  - SPINAL COMPRESSION FRACTURE [None]
  - THROMBOSIS [None]
